FAERS Safety Report 9661457 (Version 1)
Quarter: 2013Q4

REPORT INFORMATION
  Report Type: Spontaneous
  Country: US (occurrence: US)
  Receive Date: 20131031
  Receipt Date: 20131031
  Transmission Date: 20140711
  Serious: No
  Sender: FDA-Public Use
  Company Number: US-PURDUE-USA-2010-0055409

PATIENT
  Age: 62 Year
  Sex: Female
  Weight: 48.98 kg

DRUGS (7)
  1. OXYCONTIN (NDA 22-272) [Suspect]
     Indication: PAIN
     Dosage: 80 MG, Q8H
     Dates: start: 20100915
  2. OXYCONTIN (NDA 22-272) [Suspect]
     Dosage: 40 MG, Q8H
  3. OXYCODONE HCL IR CAPSULES [Concomitant]
     Indication: BREAKTHROUGH PAIN
     Dosage: 5 MG, UNK
  4. SYNTHROID [Concomitant]
     Indication: THYROID DISORDER
  5. VESSEL                             /00111601/ [Concomitant]
     Indication: HORMONE REPLACEMENT THERAPY
  6. ZOFRAN                             /00955301/ [Concomitant]
     Indication: NAUSEA
     Dosage: UNK
  7. VALIUM                             /00017001/ [Concomitant]
     Indication: MUSCLE SPASMS

REACTIONS (6)
  - Palpitations [Not Recovered/Not Resolved]
  - Chest pain [Not Recovered/Not Resolved]
  - Anxiety [Not Recovered/Not Resolved]
  - Mood altered [Not Recovered/Not Resolved]
  - Inadequate analgesia [Not Recovered/Not Resolved]
  - Insomnia [Not Recovered/Not Resolved]
